FAERS Safety Report 25203319 (Version 3)
Quarter: 2025Q2

REPORT INFORMATION
  Report Type: Spontaneous
  Country: BG (occurrence: BG)
  Receive Date: 20250416
  Receipt Date: 20250529
  Transmission Date: 20250716
  Serious: Yes (Hospitalization)
  Sender: MYLAN
  Company Number: BG-RECORDATI-2025002321

PATIENT
  Age: 74 Year
  Sex: Male

DRUGS (24)
  1. VALSARTAN [Suspect]
     Active Substance: VALSARTAN
     Indication: Hypertension
     Dosage: 160 MILLIGRAM, BID (320 MILLIGRAM, QD, 160 MILLIGRAM, BID)
     Dates: start: 20191018, end: 20250428
  2. VALSARTAN [Suspect]
     Active Substance: VALSARTAN
     Dosage: 160 MILLIGRAM, BID (320 MILLIGRAM, QD, 160 MILLIGRAM, BID)
     Route: 065
     Dates: start: 20191018, end: 20250428
  3. VALSARTAN [Suspect]
     Active Substance: VALSARTAN
     Dosage: 160 MILLIGRAM, BID (320 MILLIGRAM, QD, 160 MILLIGRAM, BID)
     Route: 065
     Dates: start: 20191018, end: 20250428
  4. VALSARTAN [Suspect]
     Active Substance: VALSARTAN
     Dosage: 160 MILLIGRAM, BID (320 MILLIGRAM, QD, 160 MILLIGRAM, BID)
     Dates: start: 20191018, end: 20250428
  5. ENALAPRIL MALEATE [Suspect]
     Active Substance: ENALAPRIL MALEATE
     Indication: Hypertension
  6. ENALAPRIL MALEATE [Suspect]
     Active Substance: ENALAPRIL MALEATE
     Route: 065
  7. ENALAPRIL MALEATE [Suspect]
     Active Substance: ENALAPRIL MALEATE
     Route: 065
  8. ENALAPRIL MALEATE [Suspect]
     Active Substance: ENALAPRIL MALEATE
  9. ENALAPRIL MALEATE [Suspect]
     Active Substance: ENALAPRIL MALEATE
     Indication: Hypertension
     Dosage: 10 MILLIGRAM, QD (10 MILLIGRAM, QD)
     Dates: start: 2005, end: 2019
  10. ENALAPRIL MALEATE [Suspect]
     Active Substance: ENALAPRIL MALEATE
     Dosage: 10 MILLIGRAM, QD (10 MILLIGRAM, QD)
     Route: 065
     Dates: start: 2005, end: 2019
  11. ENALAPRIL MALEATE [Suspect]
     Active Substance: ENALAPRIL MALEATE
     Dosage: 10 MILLIGRAM, QD (10 MILLIGRAM, QD)
     Route: 065
     Dates: start: 2005, end: 2019
  12. ENALAPRIL MALEATE [Suspect]
     Active Substance: ENALAPRIL MALEATE
     Dosage: 10 MILLIGRAM, QD (10 MILLIGRAM, QD)
     Dates: start: 2005, end: 2019
  13. LERCANIDIPINE [Suspect]
     Active Substance: LERCANIDIPINE
     Indication: Product used for unknown indication
     Dosage: 10 MILLIGRAM, QD (10 MILLIGRAM, QD)
     Dates: start: 2019
  14. LERCANIDIPINE [Suspect]
     Active Substance: LERCANIDIPINE
     Dosage: 10 MILLIGRAM, QD (10 MILLIGRAM, QD)
     Route: 065
     Dates: start: 2019
  15. LERCANIDIPINE [Suspect]
     Active Substance: LERCANIDIPINE
     Dosage: 10 MILLIGRAM, QD (10 MILLIGRAM, QD)
     Route: 065
     Dates: start: 2019
  16. LERCANIDIPINE [Suspect]
     Active Substance: LERCANIDIPINE
     Dosage: 10 MILLIGRAM, QD (10 MILLIGRAM, QD)
     Dates: start: 2019
  17. ROSUVASTATIN [Concomitant]
     Active Substance: ROSUVASTATIN
     Indication: Product used for unknown indication
     Dosage: 5 MILLIGRAM, QD (5 MILLIGRAM, QD)
     Dates: start: 2024
  18. ROSUVASTATIN [Concomitant]
     Active Substance: ROSUVASTATIN
     Dosage: 5 MILLIGRAM, QD (5 MILLIGRAM, QD)
     Route: 065
     Dates: start: 2024
  19. ROSUVASTATIN [Concomitant]
     Active Substance: ROSUVASTATIN
     Dosage: 5 MILLIGRAM, QD (5 MILLIGRAM, QD)
     Route: 065
     Dates: start: 2024
  20. ROSUVASTATIN [Concomitant]
     Active Substance: ROSUVASTATIN
     Dosage: 5 MILLIGRAM, QD (5 MILLIGRAM, QD)
     Dates: start: 2024
  21. VERAPAMIL [Concomitant]
     Active Substance: VERAPAMIL HYDROCHLORIDE
     Indication: Hypertension
     Dosage: 120 MILLIGRAM, QD (120 MILLIGRAM, QD)
     Dates: start: 2005, end: 2019
  22. VERAPAMIL [Concomitant]
     Active Substance: VERAPAMIL HYDROCHLORIDE
     Dosage: 120 MILLIGRAM, QD (120 MILLIGRAM, QD)
     Route: 065
     Dates: start: 2005, end: 2019
  23. VERAPAMIL [Concomitant]
     Active Substance: VERAPAMIL HYDROCHLORIDE
     Dosage: 120 MILLIGRAM, QD (120 MILLIGRAM, QD)
     Route: 065
     Dates: start: 2005, end: 2019
  24. VERAPAMIL [Concomitant]
     Active Substance: VERAPAMIL HYDROCHLORIDE
     Dosage: 120 MILLIGRAM, QD (120 MILLIGRAM, QD)
     Dates: start: 2005, end: 2019

REACTIONS (4)
  - Nodular melanoma [Recovered/Resolved]
  - Carcinogenicity [Recovered/Resolved]
  - Melanocytic naevus [Unknown]
  - Condition aggravated [Unknown]

NARRATIVE: CASE EVENT DATE: 20240801
